FAERS Safety Report 23048576 (Version 1)
Quarter: 2023Q4

REPORT INFORMATION
  Report Type: Spontaneous
  Country: US (occurrence: US)
  Receive Date: 20231010
  Receipt Date: 20231010
  Transmission Date: 20240110
  Serious: No
  Sender: FDA-Public Use
  Company Number: US-drreddys-SPO/USA/23/0176665

PATIENT
  Age: 25 Year

DRUGS (1)
  1. ZENATANE [Suspect]
     Active Substance: ISOTRETINOIN
     Indication: Product used for unknown indication
     Dosage: RMA ISSUE DATE: 02 MAY 2023 07:31:15 AM, 24 MAY 2023 09:14:06 AM, 28 JUNE 2023 10:35:17 AM, 01 AUGUS

REACTIONS (1)
  - Hepatic steatosis [Unknown]
